FAERS Safety Report 5533255-0 (Version None)
Quarter: 2007Q4

REPORT INFORMATION
  Report Type: 
  Country: None (occurrence: None)
  Receive Date: 20071204
  Receipt Date: 20071130
  Transmission Date: 20080405
  Serious: Yes (Other)
  Sender: FDA-Public Use
  Company Number: B0490032A

PATIENT
  Age: 70 Year
  Sex: Male

DRUGS (2)
  1. ZANTAC [Suspect]
     Indication: DRUG USE FOR UNKNOWN INDICATION
     Dosage: 100MG PER DAY
     Route: 042
     Dates: start: 20070927, end: 20071002
  2. PHENOBARBITAL TAB [Suspect]
     Indication: CONVULSION PROPHYLAXIS
     Dosage: 50MG PER DAY
     Route: 065
     Dates: start: 20070927, end: 20071002

REACTIONS (2)
  - LIVER DISORDER [None]
  - RENAL IMPAIRMENT [None]
